FAERS Safety Report 5511880-0 (Version None)
Quarter: 2007Q4

REPORT INFORMATION
  Report Type: 
  Country: None (occurrence: None)
  Receive Date: 20071109
  Receipt Date: 20071029
  Transmission Date: 20080405
  Serious: Yes (Other)
  Sender: FDA-Public Use
  Company Number: JP-PFIZER INC-2007091493

PATIENT
  Age: 61 Year
  Sex: Male

DRUGS (3)
  1. XALATAN [Suspect]
     Route: 047
  2. MIKELAN [Concomitant]
  3. AZOPT [Concomitant]

REACTIONS (2)
  - CATARACT [None]
  - VISUAL ACUITY REDUCED [None]
